FAERS Safety Report 6486488-3 (Version None)
Quarter: 2009Q4

REPORT INFORMATION
  Report Type: 
  Country: None (occurrence: None)
  Receive Date: 20091210
  Receipt Date: 20091201
  Transmission Date: 20100525
  Serious: Yes (Other)
  Sender: FDA-Public Use
  Company Number: US-JNJFOC-20091200841

PATIENT
  Age: 76 Year
  Sex: Male
  Weight: 74.39 kg

DRUGS (6)
  1. IMODIUM A-D [Suspect]
     Route: 048
     Dates: start: 20091130, end: 20091130
  2. IMODIUM A-D [Suspect]
     Indication: DIARRHOEA
     Route: 048
     Dates: start: 20091130, end: 20091130
  3. LISINOPRIL [Concomitant]
     Indication: HYPERTENSION
     Route: 065
  4. SPIRONOLACTONE [Concomitant]
     Indication: DIURETIC THERAPY
     Route: 065
     Dates: start: 20070101
  5. METFORMIN HCL [Concomitant]
     Indication: DIABETES MELLITUS
     Route: 065
  6. FLOMAX [Concomitant]
     Indication: PROSTATIC DISORDER
     Route: 065

REACTIONS (1)
  - PROSTATOMEGALY [None]
